FAERS Safety Report 12721716 (Version 2)
Quarter: 2016Q4

REPORT INFORMATION
  Report Type: Report from Study
  Country: US (occurrence: US)
  Receive Date: 20160907
  Receipt Date: 20161212
  Transmission Date: 20170207
  Serious: No
  Sender: FDA-Public Use
  Company Number: GXBR2016US002589

PATIENT
  Sex: Male
  Weight: 21.4 kg

DRUGS (1)
  1. OMNITROPE [Suspect]
     Active Substance: SOMATROPIN
     Indication: HYPOPITUITARISM
     Dosage: 0.9 MG, QD
     Route: 065
     Dates: start: 20160811

REACTIONS (1)
  - Injection site pain [Not Recovered/Not Resolved]
